FAERS Safety Report 6858481-X (Version None)
Quarter: 2010Q3

REPORT INFORMATION
  Report Type: 
  Country: None (occurrence: None)
  Receive Date: 20100719
  Receipt Date: 20080208
  Transmission Date: 20110219
  Serious: No
  Sender: FDA-Public Use
  Company Number: US-PFIZER INC-2008013723

PATIENT
  Sex: Female
  Weight: 56.818 kg

DRUGS (2)
  1. CHANTIX [Suspect]
     Indication: SMOKING CESSATION THERAPY
     Route: 048
     Dates: start: 20071001, end: 20071201
  2. FLUOXETINE HCL [Concomitant]
     Indication: DEPRESSION

REACTIONS (1)
  - FATIGUE [None]
